FAERS Safety Report 4299710-9 (Version None)
Quarter: 2004Q1

REPORT INFORMATION
  Report Type: 
  Country: None (occurrence: None)
  Receive Date: 20040126
  Receipt Date: 20031111
  Transmission Date: 20041129
  Serious: No
  Sender: FDA-Public Use
  Company Number: USA031152252

PATIENT
  Age: 44 Year
  Sex: Female

DRUGS (1)
  1. STRATTERA [Suspect]
     Dosage: 40 MG/2 DAY
     Dates: start: 20030901

REACTIONS (2)
  - BLOOD PRESSURE INCREASED [None]
  - URINE ODOUR ABNORMAL [None]
